FAERS Safety Report 4955866-3 (Version None)
Quarter: 2006Q1

REPORT INFORMATION
  Report Type: 
  Country: None (occurrence: None)
  Receive Date: 20060327
  Receipt Date: 20060327
  Transmission Date: 20060701
  Serious: Yes (Other)
  Sender: FDA-Public Use
  Company Number: None

PATIENT
  Sex: Male
  Weight: 77.5651 kg

DRUGS (11)
  1. CEPHALEXIN [Suspect]
     Indication: DENTAL TREATMENT
     Dosage: 500 MG PO QD
     Route: 048
     Dates: start: 20050928, end: 20050929
  2. ASPIRIN [Concomitant]
  3. CIPROFLOXACIN [Concomitant]
  4. METRONIDAZOLE [Concomitant]
  5. CLINDAMYCIN [Concomitant]
  6. CLONIDINE [Concomitant]
  7. CLOPIDOGREL [Concomitant]
  8. FESO4 [Concomitant]
  9. LISINOPRIL [Concomitant]
  10. RANITIDINE [Concomitant]
  11. VICODIN [Concomitant]

REACTIONS (2)
  - ABDOMINAL DISTENSION [None]
  - PANCREATITIS ACUTE [None]
